FAERS Safety Report 5239280-1 (Version None)
Quarter: 2007Q1

REPORT INFORMATION
  Report Type: 
  Country: None (occurrence: None)
  Receive Date: 20070216
  Receipt Date: 20070205
  Transmission Date: 20070707
  Serious: Yes (Hospitalization)
  Sender: FDA-Public Use
  Company Number: FR-ABBOTT-07P-056-0358296-00

PATIENT
  Sex: Female

DRUGS (5)
  1. DEPAKENE [Suspect]
     Indication: EPILEPSY
     Route: 048
     Dates: end: 20050101
  2. INSULIN GLARGINE [Suspect]
     Indication: DIABETES MELLITUS
     Route: 058
     Dates: end: 20051215
  3. ISOPHANE INSULIN [Suspect]
     Indication: DIABETES MELLITUS
     Route: 058
     Dates: start: 20051215, end: 20060115
  4. INSULIN HUMAN [Suspect]
     Indication: DIABETES MELLITUS
     Route: 058
     Dates: start: 20060115
  5. INSULIN HUMAN [Suspect]
     Dates: start: 20060101

REACTIONS (4)
  - DIABETES MELLITUS INADEQUATE CONTROL [None]
  - HYPOGLYCAEMIA [None]
  - POLYHYDRAMNIOS [None]
  - THREATENED LABOUR [None]
